FAERS Safety Report 7956167-1 (Version None)
Quarter: 2011Q4

REPORT INFORMATION
  Report Type: 
  Country: None (occurrence: None)
  Receive Date: 20111118
  Receipt Date: 20111111
  Transmission Date: 20120403
  Serious: Yes (Other)
  Sender: FDA-Public Use
  Company Number: 2011030212

PATIENT
  Age: 56 Year
  Sex: Male
  Weight: 70.3075 kg

DRUGS (7)
  1. ZEMAIRA [Suspect]
     Indication: OBSTRUCTIVE AIRWAYS DISORDER
     Dosage: SEE IMAGE
     Route: 042
     Dates: start: 20110325
  2. ZEMAIRA [Suspect]
     Indication: OBSTRUCTIVE AIRWAYS DISORDER
     Dosage: SEE IMAGE
     Route: 042
     Dates: start: 20111104, end: 20111104
  3. SYMBICORT [Concomitant]
  4. SPIRIVA [Concomitant]
  5. MUCINEX [Concomitant]
  6. PROVENTIL [Concomitant]
  7. DALIRESP [Concomitant]

REACTIONS (5)
  - DIZZINESS [None]
  - MYALGIA [None]
  - BONE PAIN [None]
  - LOSS OF CONSCIOUSNESS [None]
  - LUNG DISORDER [None]
